FAERS Safety Report 23708955 (Version 1)
Quarter: 2024Q2

REPORT INFORMATION
  Report Type: Spontaneous
  Country: US (occurrence: US)
  Receive Date: 20240404
  Receipt Date: 20240404
  Transmission Date: 20240715
  Serious: Yes (Other)
  Sender: FDA-Public Use
  Company Number: US-NOVEN PHARMACEUTICALS, INC.-2024-NOV-US000369

PATIENT
  Age: 19 Year
  Sex: Male

DRUGS (2)
  1. METHYLPHENIDATE [Suspect]
     Active Substance: METHYLPHENIDATE
     Indication: Attention deficit hyperactivity disorder
     Dosage: 54 MG, DAILY (PRESCRIBED IN THE PAST 3 YEARS)
     Route: 065
     Dates: start: 2021
  2. METHYLPHENIDATE [Suspect]
     Active Substance: METHYLPHENIDATE
     Dosage: UNKNOWN (PRESCRIBED FOR OVER TEN YEARS)
     Route: 065
     Dates: start: 2014

REACTIONS (1)
  - Myopericarditis [Recovering/Resolving]
